FAERS Safety Report 5112513-8 (Version None)
Quarter: 2006Q3

REPORT INFORMATION
  Report Type: 
  Country: None (occurrence: None)
  Receive Date: 20060920
  Receipt Date: 20060920
  Transmission Date: 20061208
  Serious: Yes (Other)
  Sender: FDA-Public Use
  Company Number: None

PATIENT
  Sex: Male
  Weight: 72.5755 kg

DRUGS (1)
  1. LARIAM [Suspect]
     Indication: MALARIA PROPHYLAXIS
     Dates: start: 20050801, end: 20050904

REACTIONS (3)
  - GRAND MAL CONVULSION [None]
  - INCONTINENCE [None]
  - TONGUE BITING [None]
